FAERS Safety Report 19988506 (Version 1)
Quarter: 2021Q4

REPORT INFORMATION
  Report Type: Spontaneous
  Country: TR (occurrence: TR)
  Receive Date: 20211023
  Receipt Date: 20211023
  Transmission Date: 20220303
  Serious: Yes (Hospitalization, Other)
  Sender: FDA-Public Use
  Company Number: TR-LUPIN PHARMACEUTICALS INC.-2021-20438

PATIENT
  Weight: .9 kg

DRUGS (5)
  1. CALCIUM [Suspect]
     Active Substance: CALCIUM
     Indication: Premature baby
     Dosage: UNK
     Route: 065
  2. AMINO ACIDS\DEXTROSE\ELECTROLYTES NOS\SOYBEAN OIL [Suspect]
     Active Substance: AMINO ACIDS\DEXTROSE\ELECTROLYTES NOS\SOYBEAN OIL
     Indication: Premature baby
     Dosage: UNK (80 CC/KG/DAY)
     Route: 065
  3. DEXTROSE [Suspect]
     Active Substance: DEXTROSE
     Indication: Premature baby
     Dosage: UNK
     Route: 065
  4. AMPICILLIN [Concomitant]
     Active Substance: AMPICILLIN
     Indication: Congenital pneumonia
     Dosage: UNK
     Route: 065
  5. GENTAMICIN [Concomitant]
     Active Substance: GENTAMICIN
     Indication: Congenital pneumonia
     Dosage: UNK
     Route: 065

REACTIONS (4)
  - Abdominal distension [Recovered/Resolved]
  - Nutritional condition abnormal [Recovered/Resolved]
  - Acute kidney injury [Recovered/Resolved]
  - Extravasation [Recovered/Resolved]
